FAERS Safety Report 6017413-7 (Version None)
Quarter: 2008Q4

REPORT INFORMATION
  Report Type: 
  Country: None (occurrence: None)
  Receive Date: 20081223
  Receipt Date: 20081222
  Transmission Date: 20090506
  Serious: Yes (Death)
  Sender: FDA-Public Use
  Company Number: PHEH2008US08878

PATIENT
  Sex: Female

DRUGS (3)
  1. ZOMETA [Suspect]
     Indication: METASTASES TO BONE
     Dosage: 4 MG, ONCE A MONTH
     Route: 042
     Dates: start: 20080301
  2. CISPLATIN [Concomitant]
     Indication: NEOPLASM MALIGNANT
  3. GEMZAR [Concomitant]
     Indication: NEOPLASM MALIGNANT

REACTIONS (1)
  - NEOPLASM MALIGNANT [None]
